FAERS Safety Report 4534190-7 (Version None)
Quarter: 2004Q4

REPORT INFORMATION
  Report Type: 
  Country: None (occurrence: None)
  Receive Date: 20041214
  Receipt Date: 20040903
  Transmission Date: 20050328
  Serious: No
  Sender: FDA-Public Use
  Company Number: 2004233591US

PATIENT
  Age: 32 Year
  Sex: Female
  Weight: 56.2 kg

DRUGS (5)
  1. BEXTRA [Suspect]
     Indication: ARTHROPATHY
     Dosage: 10 + 20 QD, ORAL
     Route: 048
     Dates: start: 20040820, end: 20040822
  2. BEXTRA [Suspect]
     Indication: ARTHROPATHY
     Dosage: 10 + 20 QD, ORAL
     Route: 048
     Dates: start: 20040823
  3. VICODIN [Concomitant]
  4. PERCOCET (OXYCODONE HYDROCHLORIDE, OXYCODONE TEREPHTHALATE) [Concomitant]
  5. DURAGESIC [Concomitant]

REACTIONS (11)
  - COORDINATION ABNORMAL [None]
  - DIARRHOEA [None]
  - DIZZINESS [None]
  - DYSPNOEA [None]
  - FEELING ABNORMAL [None]
  - HYPERSENSITIVITY [None]
  - HYPOKINESIA [None]
  - INSOMNIA [None]
  - NAUSEA [None]
  - URTICARIA [None]
  - VISION BLURRED [None]
